FAERS Safety Report 7071494-0 (Version None)
Quarter: 2010Q4

REPORT INFORMATION
  Report Type: 
  Country: None (occurrence: None)
  Receive Date: 20101029
  Receipt Date: 20090911
  Transmission Date: 20110411
  Serious: No
  Sender: FDA-Public Use
  Company Number: A0806902A

PATIENT
  Age: 83 Year
  Sex: Male

DRUGS (12)
  1. ADVAIR DISKUS 100/50 [Suspect]
     Indication: PRODUCT USED FOR UNKNOWN INDICATION
     Dosage: 1PUFF SINGLE DOSE
     Route: 055
     Dates: start: 20090910, end: 20090910
  2. FLUOXETINE [Concomitant]
  3. LIPITOR [Concomitant]
  4. TAMSULOSIN [Concomitant]
  5. DIGOXIN [Concomitant]
  6. METOPROLOL [Concomitant]
  7. FUROSEMIDE [Concomitant]
  8. OXYCODONE [Concomitant]
  9. LAMISIL [Concomitant]
  10. AMBIEN [Concomitant]
  11. IRON PILLS [Concomitant]
  12. ALIGN [Concomitant]

REACTIONS (7)
  - DYSPHONIA [None]
  - HEADACHE [None]
  - INSOMNIA [None]
  - NERVOUSNESS [None]
  - SPUTUM INCREASED [None]
  - TACHYCARDIA [None]
  - TREMOR [None]
